FAERS Safety Report 16425131 (Version 2)
Quarter: 2019Q4

REPORT INFORMATION
  Report Type: Spontaneous
  Country: US (occurrence: US)
  Receive Date: 20190613
  Receipt Date: 20191205
  Transmission Date: 20200122
  Serious: Yes (Hospitalization)
  Sender: FDA-Public Use
  Company Number: US-SUN PHARMACEUTICAL INDUSTRIES LTD-2019R1-210563

PATIENT
  Age: 80 Year
  Sex: Male

DRUGS (2)
  1. CIPROFLOXACIN. [Suspect]
     Active Substance: CIPROFLOXACIN
     Indication: DYSURIA
  2. CIPROFLOXACIN. [Suspect]
     Active Substance: CIPROFLOXACIN
     Indication: INJURY
     Dosage: UNK
     Route: 065

REACTIONS (2)
  - Hyponatraemia [Recovering/Resolving]
  - Inappropriate antidiuretic hormone secretion [Recovering/Resolving]
